FAERS Safety Report 7496017-3 (Version None)
Quarter: 2011Q2

REPORT INFORMATION
  Report Type: 
  Country: None (occurrence: None)
  Receive Date: 20110523
  Receipt Date: 20110510
  Transmission Date: 20111010
  Serious: Yes (Hospitalization)
  Sender: FDA-Public Use
  Company Number: DE-NAPPMUNDI-DEU-2011-0007037

PATIENT
  Sex: Male
  Weight: 98 kg

DRUGS (12)
  1. OXYCODONE HCL [Suspect]
     Indication: MUSCULOSKELETAL PAIN
  2. PENTAERYTHRITOL TETRANITRATE [Concomitant]
     Dosage: 80 UNK, BID
  3. METOPROLOL SUCCINATE [Concomitant]
     Dosage: 95 MG, DAILY
  4. FERRO SANOL                        /00023514/ [Concomitant]
     Dosage: 1 DF, DAILY
  5. ASPIRIN [Concomitant]
     Dosage: 100 MG, DAILY
  6. LISINOPRIL [Concomitant]
     Dosage: 5 MG, BID
  7. OXYCODONE HCL [Suspect]
     Indication: BACK PAIN
     Dosage: 20 MG, BID
     Dates: start: 19990101
  8. MOVICOL                            /01625101/ [Concomitant]
     Dosage: 1 DF, DAILY
  9. DIGITOXIN TAB [Concomitant]
     Dosage: 0.07 UNK, DAILY
  10. TORSEMIDE [Concomitant]
     Dosage: 5 MG, DAILY
  11. OXYCODONE HCL [Suspect]
     Indication: BACK PAIN
     Dosage: 10 MG, BID
     Route: 048
     Dates: start: 19990101
  12. OXYCODONE HCL [Suspect]
     Indication: MUSCULOSKELETAL PAIN

REACTIONS (5)
  - FATIGUE [None]
  - HYPERHIDROSIS [None]
  - GENERAL PHYSICAL HEALTH DETERIORATION [None]
  - DYSPNOEA EXERTIONAL [None]
  - ANXIETY [None]
